FAERS Safety Report 15618163 (Version 2)
Quarter: 2019Q1

REPORT INFORMATION
  Report Type: Spontaneous
  Country: US (occurrence: US)
  Receive Date: 20181114
  Receipt Date: 20190123
  Transmission Date: 20190417
  Serious: No
  Sender: FDA-Public Use
  Company Number: US-PFIZER INC-2018453349

PATIENT
  Age: 60 Year
  Sex: Male

DRUGS (1)
  1. METHOTREXATE SODIUM. [Suspect]
     Active Substance: METHOTREXATE SODIUM
     Dosage: UNK
     Dates: end: 201509

REACTIONS (2)
  - Drug intolerance [Unknown]
  - Ulcer [Recovering/Resolving]

NARRATIVE: CASE EVENT DATE: 201509
